FAERS Safety Report 23038457 (Version 2)
Quarter: 2023Q4

REPORT INFORMATION
  Report Type: Spontaneous
  Country: JP (occurrence: None)
  Receive Date: 20231006
  Receipt Date: 20231103
  Transmission Date: 20240110
  Serious: No
  Sender: FDA-Public Use
  Company Number: 2023A076456

PATIENT
  Age: 28323 Day
  Sex: Female
  Weight: 50 kg

DRUGS (10)
  1. LYNPARZA [Suspect]
     Active Substance: OLAPARIB
     Indication: Ovarian cancer
     Dosage: DOSE UNKNOWN
     Route: 048
     Dates: start: 20210602, end: 20221116
  2. LYNPARZA [Suspect]
     Active Substance: OLAPARIB
     Indication: Ovarian cancer
     Dosage: DOSE UNKNOWN
     Route: 048
     Dates: start: 20221207, end: 20221228
  3. LYNPARZA [Suspect]
     Active Substance: OLAPARIB
     Indication: Ovarian cancer
     Dosage: DOSE UNKNOWN
     Route: 048
     Dates: start: 20230118, end: 20230127
  4. LYNPARZA [Suspect]
     Active Substance: OLAPARIB
     Indication: Ovarian cancer
     Dosage: DOSE UNKNOWN
     Route: 048
     Dates: start: 20230217, end: 20230301
  5. BEVACIZUMAB [Concomitant]
     Active Substance: BEVACIZUMAB
     Indication: Ovarian cancer
     Dosage: DOSE UNKNOWN
     Dates: start: 20210602, end: 20221116
  6. BEVACIZUMAB [Concomitant]
     Active Substance: BEVACIZUMAB
     Indication: Ovarian cancer
     Dosage: DOSE UNKNOWN
     Dates: start: 20221207, end: 20221207
  7. LEVOTHYROXINE [Concomitant]
     Active Substance: LEVOTHYROXINE
     Indication: Hypothyroidism
  8. CANDESARTAN [Concomitant]
     Active Substance: CANDESARTAN
     Indication: Hypertension
     Dates: start: 20220128, end: 20230608
  9. HERBALS [Concomitant]
     Active Substance: HERBALS
     Dates: start: 20201117, end: 20221026
  10. MAGNESIUM OXIDE [Concomitant]
     Active Substance: MAGNESIUM OXIDE
     Dates: start: 20201117, end: 20221026

REACTIONS (5)
  - Oedema peripheral [Recovering/Resolving]
  - Erythema [Recovering/Resolving]
  - Rash [Recovering/Resolving]
  - Inguinal hernia [Unknown]
  - Hypertension [Recovered/Resolved]

NARRATIVE: CASE EVENT DATE: 20200128
